FAERS Safety Report 4561274-X (Version None)
Quarter: 2005Q1

REPORT INFORMATION
  Report Type: 
  Country: None (occurrence: None)
  Receive Date: 20050126
  Receipt Date: 20050114
  Transmission Date: 20050727
  Serious: Yes (Hospitalization)
  Sender: FDA-Public Use
  Company Number: JP-JNJFOC-20041008024

PATIENT
  Sex: Female

DRUGS (10)
  1. RISPERDAL [Suspect]
     Route: 049
  2. RISPERDAL [Suspect]
     Indication: SCHIZOPHRENIA
     Route: 049
  3. NITRAZEPAM [Concomitant]
  4. NITRAZEPAM [Concomitant]
  5. SENNOSIDE [Concomitant]
     Indication: CONSTIPATION
  6. CHLORPROMAZINE PROMETHAZINE [Concomitant]
  7. CHLORPROMAZINE PROMETHAZINE [Concomitant]
  8. CHLORPROMAZINE PROMETHAZINE [Concomitant]
     Indication: SCHIZOPHRENIA
  9. FLUNITRAZEPAM [Concomitant]
     Indication: SCHIZOPHRENIA
  10. QUAZEPAM [Concomitant]
     Indication: SCHIZOPHRENIA

REACTIONS (5)
  - ANAEMIA MEGALOBLASTIC [None]
  - GASTRITIS ATROPHIC [None]
  - HAEMOLYTIC ANAEMIA [None]
  - LYMPHOCYTE STIMULATION TEST POSITIVE [None]
  - PERNICIOUS ANAEMIA [None]
